FAERS Safety Report 25383324 (Version 2)
Quarter: 2025Q2

REPORT INFORMATION
  Report Type: Spontaneous
  Country: GB (occurrence: GB)
  Receive Date: 20250602
  Receipt Date: 20250602
  Transmission Date: 20250716
  Serious: Yes (Other)
  Sender: BIOCODEX
  Company Number: GB-BIOCODEX2-2025000469

PATIENT
  Age: 12 Year

DRUGS (15)
  1. STIRIPENTOL [Suspect]
     Active Substance: STIRIPENTOL
     Indication: Severe myoclonic epilepsy of infancy
     Route: 065
  2. STIRIPENTOL [Suspect]
     Active Substance: STIRIPENTOL
     Indication: Severe myoclonic epilepsy of infancy
     Dosage: 300MG IN THE MORNING AND 400MG AT NIGHT (46 MG/KG/DAY)
     Route: 065
     Dates: start: 201510
  3. STIRIPENTOL [Suspect]
     Active Substance: STIRIPENTOL
     Indication: Severe myoclonic epilepsy of infancy
     Dosage: 300MG BD (30MG/KG/D)
     Route: 065
     Dates: start: 201804
  4. STIRIPENTOL [Suspect]
     Active Substance: STIRIPENTOL
     Indication: Severe myoclonic epilepsy of infancy
     Route: 065
     Dates: start: 201909
  5. STIRIPENTOL [Suspect]
     Active Substance: STIRIPENTOL
     Indication: Severe myoclonic epilepsy of infancy
     Route: 065
  6. STIRIPENTOL [Suspect]
     Active Substance: STIRIPENTOL
     Indication: Severe myoclonic epilepsy of infancy
     Route: 065
  7. STIRIPENTOL [Suspect]
     Active Substance: STIRIPENTOL
     Indication: Severe myoclonic epilepsy of infancy
     Dosage: 600MG BD
     Route: 065
     Dates: start: 202304
  8. STIRIPENTOL [Suspect]
     Active Substance: STIRIPENTOL
     Indication: Severe myoclonic epilepsy of infancy
     Dosage: 500MG BD
     Route: 065
     Dates: start: 202407
  9. STIRIPENTOL [Suspect]
     Active Substance: STIRIPENTOL
     Indication: Severe myoclonic epilepsy of infancy
     Dosage: 500MG TWICE A DAY (26MG/KG/D)
     Route: 065
     Dates: start: 202503
  10. CLOBAZAM [Concomitant]
     Active Substance: CLOBAZAM
     Indication: Severe myoclonic epilepsy of infancy
     Dosage: 4MG IN THE MORNING AND 4MG AT NIGHT
     Route: 065
     Dates: end: 201704
  11. CLOBAZAM [Concomitant]
     Active Substance: CLOBAZAM
     Indication: Severe myoclonic epilepsy of infancy
     Dosage: 2.5MG AT NIGHT
     Route: 065
  12. CLOBAZAM [Concomitant]
     Active Substance: CLOBAZAM
     Indication: Severe myoclonic epilepsy of infancy
     Dosage: 5MG ONCE AT NIGHT
     Route: 065
     Dates: start: 202012
  13. CLOBAZAM [Concomitant]
     Active Substance: CLOBAZAM
     Indication: Severe myoclonic epilepsy of infancy
     Dosage: 8MG AT NIGHT
     Route: 065
     Dates: start: 202503
  14. FENFLURAMINE [Concomitant]
     Active Substance: FENFLURAMINE
     Indication: Product used for unknown indication
     Route: 065
     Dates: start: 202309
  15. FENFLURAMINE [Concomitant]
     Active Substance: FENFLURAMINE
     Indication: Product used for unknown indication
     Route: 065
     Dates: start: 202312, end: 202503

REACTIONS (2)
  - Seizure [Not Recovered/Not Resolved]
  - Off label use [Unknown]
